FAERS Safety Report 17952081 (Version 1)
Quarter: 2020Q2

REPORT INFORMATION
  Report Type: Spontaneous
  Country: JP (occurrence: JP)
  Receive Date: 20200626
  Receipt Date: 20200626
  Transmission Date: 20200714
  Serious: Yes (Other)
  Sender: FDA-Public Use
  Company Number: JP-BAUSCH-BL-2020-000773

PATIENT
  Age: 66 Year
  Sex: Male
  Weight: 73 kg

DRUGS (4)
  1. LUMICEF [Suspect]
     Active Substance: BRODALUMAB
     Indication: PUSTULAR PSORIASIS
     Dosage: SYRINGE 0, 1, 2 WEEKS, THEN ONCE EVERY 2 WEEKS
     Route: 058
     Dates: start: 20191206, end: 20191220
  2. LUMICEF [Suspect]
     Active Substance: BRODALUMAB
     Dosage: SYRINGE
     Route: 058
     Dates: start: 20200120, end: 20200316
  3. TREMFYA [Concomitant]
     Active Substance: GUSELKUMAB
     Indication: PSORIASIS
  4. NEORAL [Concomitant]
     Active Substance: CYCLOSPORINE
     Indication: PSORIASIS

REACTIONS (3)
  - Primary biliary cholangitis [Not Recovered/Not Resolved]
  - Neutrophil count decreased [Not Recovered/Not Resolved]
  - Immune-mediated hepatic disorder [Recovering/Resolving]

NARRATIVE: CASE EVENT DATE: 2020
